FAERS Safety Report 25199699 (Version 1)
Quarter: 2025Q2

REPORT INFORMATION
  Report Type: Spontaneous
  Country: US (occurrence: US)
  Receive Date: 20250415
  Receipt Date: 20250415
  Transmission Date: 20250716
  Serious: No
  Sender: DUCHESNAY
  Company Number: US-DUCHESNAY-2024US000212

PATIENT

DRUGS (1)
  1. OSPHENA [Suspect]
     Active Substance: OSPEMIFENE
     Indication: Product used for unknown indication
     Dosage: 1 TABLET PER NIGHT WITH FOOD
     Route: 048

REACTIONS (2)
  - Nightmare [Recovered/Resolved]
  - Product contamination physical [Unknown]
